FAERS Safety Report 5563137-X (Version None)
Quarter: 2007Q4

REPORT INFORMATION
  Report Type: 
  Country: None (occurrence: None)
  Receive Date: 20071217
  Receipt Date: 20071213
  Transmission Date: 20080405
  Serious: Yes (Disabling)
  Sender: FDA-Public Use
  Company Number: B0494884A

PATIENT
  Age: 25 Year
  Sex: Female

DRUGS (6)
  1. PAXIL [Suspect]
     Indication: DEPRESSION
     Dosage: 10MG PER DAY
     Route: 048
     Dates: start: 20051031, end: 20051113
  2. PAXIL [Suspect]
     Dosage: 20MG PER DAY
     Route: 048
     Dates: start: 20051114, end: 20051127
  3. PAXIL [Suspect]
     Dosage: 30MG PER DAY
     Route: 048
     Dates: start: 20051128, end: 20051211
  4. PAXIL [Suspect]
     Dosage: 40MG PER DAY
     Route: 048
     Dates: start: 20051212, end: 20070930
  5. PAXIL [Suspect]
     Dosage: 30MG PER DAY
     Route: 048
     Dates: start: 20071001
  6. DEPAKENE [Concomitant]
     Indication: DEPRESSION
     Dosage: 200MG PER DAY
     Route: 048
     Dates: start: 20050926

REACTIONS (1)
  - SELF INJURIOUS BEHAVIOUR [None]
